FAERS Safety Report 5003786-0 (Version None)
Quarter: 2006Q2

REPORT INFORMATION
  Report Type: 
  Country: None (occurrence: None)
  Receive Date: 20060516
  Receipt Date: 20051005
  Transmission Date: 20061013
  Serious: Yes (Hospitalization, Disabling)
  Sender: FDA-Public Use
  Company Number: US-MERCK-0510USA03842

PATIENT
  Sex: Female

DRUGS (1)
  1. VIOXX [Suspect]
     Route: 048
     Dates: start: 19991026, end: 20041011

REACTIONS (20)
  - CARDIOVASCULAR DISORDER [None]
  - CERVICOBRACHIAL SYNDROME [None]
  - CERVIX DISORDER [None]
  - COMPLEX REGIONAL PAIN SYNDROME [None]
  - DEEP VEIN THROMBOSIS [None]
  - DYSFUNCTIONAL UTERINE BLEEDING [None]
  - ENDOMETRIAL DISORDER [None]
  - INTERVERTEBRAL DISC PROTRUSION [None]
  - IRON DEFICIENCY ANAEMIA [None]
  - MEMORY IMPAIRMENT [None]
  - MENOMETRORRHAGIA [None]
  - NEUROLOGICAL SYMPTOM [None]
  - PERONEAL NERVE PALSY [None]
  - PHLEBITIS [None]
  - POLYNEUROPATHY [None]
  - SCIATICA [None]
  - SPINAL COLUMN STENOSIS [None]
  - SYNCOPE [None]
  - THROMBOPHLEBITIS [None]
  - THROMBOSIS [None]
